FAERS Safety Report 4704677-2 (Version None)
Quarter: 2005Q2

REPORT INFORMATION
  Report Type: 
  Country: None (occurrence: None)
  Receive Date: 20050630
  Receipt Date: 20050616
  Transmission Date: 20051028
  Serious: Yes (Other)
  Sender: FDA-Public Use
  Company Number: 2005089789

PATIENT
  Sex: Male
  Weight: 102.0593 kg

DRUGS (9)
  1. VIAGRA [Suspect]
     Indication: ERECTILE DYSFUNCTION
     Dosage: (50 MG, AS NECESSARY), ORAL
     Route: 048
     Dates: start: 19980601
  2. LIPITOR [Suspect]
     Indication: BLOOD CHOLESTEROL INCREASED
     Dosage: 20 MG (20 MG, 1 IN 1 D), ORAL
     Route: 048
  3. LEVITRA [Concomitant]
  4. CIALIS [Concomitant]
  5. FLONASE [Concomitant]
  6. ALLEGRA [Concomitant]
  7. VITAMINS (VITAMINS) [Concomitant]
  8. GINKGO BILOBA (GINKGO BILOBA) [Concomitant]
  9. PHOSPHATIDYL SERINE (PHOSPHATIDYL SERINE) [Concomitant]

REACTIONS (12)
  - ABNORMAL SENSATION IN EYE [None]
  - BLOOD CHOLESTEROL INCREASED [None]
  - CORONARY ARTERY OCCLUSION [None]
  - CYANOPSIA [None]
  - DISTURBANCE IN ATTENTION [None]
  - INTERVERTEBRAL DISC PROTRUSION [None]
  - NAUSEA [None]
  - PHOTOPSIA [None]
  - ROAD TRAFFIC ACCIDENT [None]
  - VISUAL ACUITY REDUCED [None]
  - VITREOUS DETACHMENT [None]
  - VITREOUS FLOATERS [None]
